FAERS Safety Report 6758724-7 (Version None)
Quarter: 2010Q2

REPORT INFORMATION
  Report Type: 
  Country: None (occurrence: None)
  Receive Date: 20100607
  Receipt Date: 20100528
  Transmission Date: 20101027
  Serious: Yes (Hospitalization)
  Sender: FDA-Public Use
  Company Number: JP-MERCK-1004USA04793

PATIENT
  Age: 87 Year
  Sex: Female

DRUGS (11)
  1. JANUVIA [Suspect]
     Indication: DIABETES MELLITUS
     Route: 048
     Dates: start: 20100216
  2. CELECOX [Concomitant]
     Indication: OSTEOARTHRITIS
     Route: 048
     Dates: start: 20071127
  3. FENOFIBRATE [Suspect]
     Route: 048
     Dates: start: 20100216
  4. FUROSEMIDE [Concomitant]
     Indication: OEDEMA
     Route: 048
     Dates: start: 20071001
  5. AMARYL [Suspect]
     Indication: DIABETES MELLITUS
     Route: 048
     Dates: start: 20071001, end: 20100311
  6. AMARYL [Suspect]
     Dosage: 3MG IN THE MORNING AND 2 IN THE EVENING
     Route: 048
     Dates: start: 20100312, end: 20100330
  7. AMARYL [Suspect]
     Route: 048
     Dates: start: 20100331, end: 20100408
  8. MELBIN [Suspect]
     Indication: DIABETES MELLITUS
     Route: 048
     Dates: start: 20071001, end: 20100408
  9. SEIBULE [Suspect]
     Indication: DIABETES MELLITUS
     Route: 048
     Dates: start: 20071001
  10. ACTOS [Suspect]
     Indication: DIABETES MELLITUS
     Route: 048
     Dates: start: 20090101
  11. ACTONEL [Concomitant]
     Indication: OSTEOPOROSIS
     Route: 048
     Dates: start: 20071027

REACTIONS (1)
  - HYPOGLYCAEMIA [None]
